FAERS Safety Report 8448417-2 (Version None)
Quarter: 2012Q2

REPORT INFORMATION
  Report Type: 
  Country: None (occurrence: None)
  Receive Date: 20120619
  Receipt Date: 20120607
  Transmission Date: 20120825
  Serious: Yes (Other)
  Sender: FDA-Public Use
  Company Number: JP-ROCHE-1068624

PATIENT
  Age: 62 Year
  Sex: Male

DRUGS (5)
  1. MIRCERA [Suspect]
     Indication: NEPHROGENIC ANAEMIA
     Route: 042
     Dates: start: 20120104, end: 20120201
  2. MIRCERA [Suspect]
     Route: 042
     Dates: start: 20120302, end: 20120302
  3. MIRCERA [Suspect]
     Route: 042
     Dates: start: 20120301, end: 20120330
  4. EPOGIN S [Concomitant]
     Indication: NEPHROGENIC ANAEMIA
     Dates: end: 20111201
  5. EPOGIN S [Concomitant]
     Dosage: ERYTHROPOIESIS STIMULATING AGENT

REACTIONS (1)
  - HAEMOGLOBIN DECREASED [None]
